FAERS Safety Report 8156302-9 (Version None)
Quarter: 2012Q1

REPORT INFORMATION
  Report Type: 
  Country: None (occurrence: None)
  Receive Date: 20120222
  Receipt Date: 20110328
  Transmission Date: 20120608
  Serious: No
  Sender: FDA-Public Use
  Company Number: US-BRISTOL-MYERS SQUIBB COMPANY-15643026

PATIENT
  Sex: Female

DRUGS (2)
  1. KENALOG [Suspect]
  2. DEXAMETHASONE SODIUM PHOSPHATE [Concomitant]
     Dosage: 1 DF=4MG/ML.BATCH NO-0556,31AUG11.

REACTIONS (2)
  - INJECTION SITE PAIN [None]
  - INJECTION SITE SWELLING [None]
